FAERS Safety Report 10087204 (Version 2)
Quarter: 2014Q2

REPORT INFORMATION
  Report Type: Report from Study
  Country: JP (occurrence: JP)
  Receive Date: 20140418
  Receipt Date: 20140515
  Transmission Date: 20141212
  Serious: Yes (Hospitalization)
  Sender: FDA-Public Use
  Company Number: JP-AMGEN-JPNCT2014028505

PATIENT
  Age: 82 Year
  Sex: Male
  Weight: 64 kg

DRUGS (14)
  1. DARBEPOETIN ALFA [Suspect]
     Indication: NEPHROGENIC ANAEMIA
     Dosage: 30 MUG, QD
     Route: 058
     Dates: start: 20101020, end: 20110207
  2. DARBEPOETIN ALFA [Suspect]
     Dosage: 30 MUG, UNK
     Route: 040
     Dates: start: 20110221, end: 20130405
  3. KREMEZIN [Concomitant]
     Indication: RENAL SURGERY
     Dosage: UNK
     Route: 048
  4. CARDENALIN [Concomitant]
     Dosage: UNK
     Route: 048
  5. LASIX                              /00032601/ [Concomitant]
     Indication: RENAL SURGERY
     Dosage: UNK
     Route: 048
  6. BAYASPIRIN [Concomitant]
     Dosage: UNK
     Route: 048
  7. RENIVACE [Concomitant]
     Indication: RENAL SURGERY
     Dosage: UNK
     Route: 048
  8. SIGMART [Concomitant]
     Dosage: UNK
     Route: 048
  9. PROMAC                             /00024401/ [Concomitant]
     Dosage: UNK
     Route: 048
  10. ATELEC [Concomitant]
     Dosage: UNK
     Route: 048
  11. SELECTOL [Concomitant]
     Dosage: UNK
     Route: 048
  12. FERROMIA [Concomitant]
     Dosage: UNK
     Route: 048
  13. ZYLORIC [Concomitant]
     Dosage: UNK
     Route: 048
  14. SODIUM BICARBONATE [Concomitant]
     Dosage: UNK
     Route: 048

REACTIONS (1)
  - Back pain [Unknown]
